FAERS Safety Report 8910662 (Version 1)
Quarter: 2012Q4

REPORT INFORMATION
  Report Type: Spontaneous
  Country: CA (occurrence: None)
  Receive Date: 20121108
  Receipt Date: 20121108
  Transmission Date: 20130627
  Serious: Yes (Disabling, Other)
  Sender: FDA-Public Use
  Company Number: 2012000240

PATIENT
  Age: 50 Year
  Sex: Male
  Weight: 136 kg

DRUGS (8)
  1. ACEON [Suspect]
     Indication: HYPERTENSION ARTERIAL
     Route: 048
     Dates: start: 20110421, end: 20110425
  2. ACEON [Suspect]
     Indication: NEPHROPATHY
     Route: 048
     Dates: start: 20110421, end: 20110425
  3. INSULIN [Concomitant]
  4. FUROSEMIDE [Concomitant]
  5. SIMVASTATIN [Concomitant]
  6. ACETAMINOPHEN W/OXYCODONE (OXYCODONE HYDROCHLORIDE, PARACETAMOL) [Concomitant]
  7. ASPIRIN (ACETYLSALICYLIC ACID) [Concomitant]
  8. CANNABIS SATIVA SUBSP. INDICA TOP [Concomitant]

REACTIONS (36)
  - Sinus tachycardia [None]
  - Visual impairment [None]
  - Macular oedema [None]
  - Eye haemorrhage [None]
  - Hyperhidrosis [None]
  - Paraesthesia [None]
  - Epistaxis [None]
  - Bundle branch block right [None]
  - Vasodilatation [None]
  - Dyspnoea [None]
  - Diabetic retinopathy [None]
  - Drug ineffective [None]
  - Hypertension [None]
  - Anxiety [None]
  - Neck pain [None]
  - Insomnia [None]
  - Irritability [None]
  - Nausea [None]
  - Diarrhoea [None]
  - Hearing impaired [None]
  - Fatigue [None]
  - Oropharyngeal pain [None]
  - Abdominal pain upper [None]
  - Angioedema [None]
  - Periorbital oedema [None]
  - Conjunctival oedema [None]
  - Face oedema [None]
  - Asthenia [None]
  - Headache [None]
  - Dizziness [None]
  - Fall [None]
  - Pyrexia [None]
  - Chills [None]
  - Drug hypersensitivity [None]
  - Visual acuity reduced [None]
  - Retinal aneurysm [None]
